FAERS Safety Report 20996839 (Version 2)
Quarter: 2022Q3

REPORT INFORMATION
  Report Type: Report from Study
  Country: BR (occurrence: BR)
  Receive Date: 20220623
  Receipt Date: 20220718
  Transmission Date: 20221027
  Serious: Yes (Hospitalization, Other)
  Sender: FDA-Public Use
  Company Number: BR-BRISTOL-MYERS SQUIBB COMPANY-2022-036603

PATIENT
  Age: 42 Year
  Sex: Female
  Weight: 47 kg

DRUGS (14)
  1. PACLITAXEL [Suspect]
     Active Substance: PACLITAXEL
     Indication: Breast cancer
     Dosage: MOST RECENT DOSE (113.28 MG) ON 25-MAY-2021
     Route: 042
     Dates: start: 20210318
  2. DOXORUBICIN HYDROCHLORIDE [Suspect]
     Active Substance: DOXORUBICIN HYDROCHLORIDE
     Indication: Breast cancer
     Dosage: MOST RECENT DOSE RECEIVED ON 17-AUG-2021 (83.4MG)
     Route: 042
     Dates: start: 20210610
  3. CYCLOPHOSPHAMIDE [Suspect]
     Active Substance: CYCLOPHOSPHAMIDE
     Indication: Breast cancer
     Dosage: MOST RECENT DOSE RECEIVED ON 17-AUG-2021 (834MG)
     Route: 042
     Dates: start: 20210610
  4. TAMOXIFEN [Suspect]
     Active Substance: TAMOXIFEN
     Indication: Breast cancer
     Dosage: MOST RECENT DOSE WAS ADMINISTERED ON 05-NOV-2021
     Route: 048
     Dates: start: 20210928
  5. ALBUTEROL SULFATE [Concomitant]
     Active Substance: ALBUTEROL SULFATE
     Indication: Product used for unknown indication
     Dosage: 1DF=100
     Route: 055
     Dates: start: 20210427
  6. LEVOTHYROXINE [Concomitant]
     Active Substance: LEVOTHYROXINE
     Indication: Product used for unknown indication
     Dosage: 1DF=100
     Route: 048
     Dates: start: 20220312
  7. LEVOTHYROXINE [Concomitant]
     Active Substance: LEVOTHYROXINE
     Dosage: 1DF=125
     Route: 048
     Dates: start: 20220408
  8. METAMIZOLE SODIUM [Concomitant]
     Active Substance: METAMIZOLE SODIUM
     Indication: Product used for unknown indication
     Route: 048
     Dates: start: 20220429, end: 20220506
  9. AMITRIPTYLINE HYDROCHLORIDE [Concomitant]
     Active Substance: AMITRIPTYLINE HYDROCHLORIDE
     Indication: Product used for unknown indication
     Route: 048
     Dates: start: 20211106
  10. CHAMOMILE CREAM [Concomitant]
     Indication: Product used for unknown indication
     Route: 061
     Dates: start: 20211106
  11. BECLOMETASONE DIPROPIONATE (CLENIL) [Concomitant]
     Indication: Product used for unknown indication
     Dosage: 1DF=3
     Route: 055
     Dates: start: 202201
  12. AMOXICILLIN [Concomitant]
     Active Substance: AMOXICILLIN
     Indication: Product used for unknown indication
     Route: 048
     Dates: start: 20220428, end: 20220504
  13. METAMIZOLE [Concomitant]
     Active Substance: METAMIZOLE
     Indication: Product used for unknown indication
     Route: 048
     Dates: start: 20220421, end: 20220428
  14. DIPYRONE [Concomitant]
     Active Substance: DIPYRONE
     Indication: Product used for unknown indication
     Dosage: 1DF=160
     Route: 048
     Dates: start: 20220331

REACTIONS (1)
  - Pulmonary tuberculosis [Recovered/Resolved]

NARRATIVE: CASE EVENT DATE: 20220506
